FAERS Safety Report 8412305-8 (Version None)
Quarter: 2012Q2

REPORT INFORMATION
  Report Type: 
  Country: None (occurrence: None)
  Receive Date: 20120605
  Receipt Date: 20120525
  Transmission Date: 20120825
  Serious: No
  Sender: FDA-Public Use
  Company Number: US-BAYER-2012-053452

PATIENT
  Age: 33 Year
  Sex: Male
  Weight: 104 kg

DRUGS (3)
  1. UNKNOWN [Concomitant]
     Indication: ULCER
  2. ALEVE (CAPLET) [Suspect]
     Indication: ABDOMINAL PAIN UPPER
     Dosage: BOTTLE COUNT 24S
     Route: 048
     Dates: start: 20120525
  3. PRILOSEC [Concomitant]

REACTIONS (3)
  - PYREXIA [None]
  - HEADACHE [None]
  - HYPERHIDROSIS [None]
